FAERS Safety Report 10072738 (Version 1)
Quarter: 2014Q1

REPORT INFORMATION
  Report Type: Spontaneous
  Country: SE (occurrence: None)
  Receive Date: 20140314
  Receipt Date: 20140314
  Transmission Date: 20141002
  Serious: Yes (Other)
  Sender: FDA-Public Use
  Company Number: 226268LEO

PATIENT
  Age: 55 Year
  Sex: Male

DRUGS (2)
  1. DAIVOBET [Suspect]
     Indication: PSORIASIS
  2. PIRFENIDONE [Suspect]
     Indication: PRODUCT USED FOR UNKNOWN INDICATION
     Dosage: 801 MG (267 MG 3 IN 1 D)
     Route: 048

REACTIONS (4)
  - Psoriasis [None]
  - Depression [None]
  - Swelling face [None]
  - Local swelling [None]
